FAERS Safety Report 13776638 (Version 1)
Quarter: 2017Q3

REPORT INFORMATION
  Report Type: Spontaneous
  Country: ES (occurrence: ES)
  Receive Date: 20170720
  Receipt Date: 20170720
  Transmission Date: 20171127
  Serious: Yes (Other)
  Sender: FDA-Public Use
  Company Number: ES-GILEAD-2017-0277592

PATIENT
  Age: 81 Year
  Sex: Female

DRUGS (3)
  1. ZYDELIG [Suspect]
     Active Substance: IDELALISIB
     Indication: CHRONIC LYMPHOCYTIC LEUKAEMIA
     Dosage: UNK
     Route: 048
     Dates: start: 20161108, end: 20161126
  2. RITUXIMAB. [Concomitant]
     Active Substance: RITUXIMAB
     Dosage: UNK
     Dates: start: 20161108
  3. ZYDELIG [Suspect]
     Active Substance: IDELALISIB
     Dosage: 100 MG, QD
     Route: 048
     Dates: start: 20161227

REACTIONS (6)
  - Hyperkalaemia [Unknown]
  - Off label use [Unknown]
  - Skin exfoliation [Unknown]
  - Atrial fibrillation [Unknown]
  - Arrhythmia [Unknown]
  - Acidosis [Unknown]

NARRATIVE: CASE EVENT DATE: 20161126
